FAERS Safety Report 5094222-7 (Version None)
Quarter: 2006Q3

REPORT INFORMATION
  Report Type: 
  Country: None (occurrence: None)
  Receive Date: 20060831
  Receipt Date: 20060817
  Transmission Date: 20061208
  Serious: Yes (Hospitalization)
  Sender: FDA-Public Use
  Company Number: US-BRISTOL-MYERS SQUIBB COMPANY-13480660

PATIENT
  Age: 48 Year
  Sex: Male
  Weight: 101 kg

DRUGS (6)
  1. CYCLOPHOSPHAMIDE [Suspect]
     Indication: NON-HODGKIN'S LYMPHOMA
     Dates: start: 20060711, end: 20060711
  2. DOXORUBICIN HCL [Suspect]
     Indication: NON-HODGKIN'S LYMPHOMA
     Dates: start: 20060711, end: 20060711
  3. DOXORUBICIN HCL [Suspect]
     Dates: start: 20060524, end: 20060711
  4. VINCRISTINE SULFATE [Suspect]
     Indication: NON-HODGKIN'S LYMPHOMA
     Dates: start: 20060524, end: 20060711
  5. PREDNISONE TAB [Suspect]
     Dates: start: 20060711, end: 20060711
  6. RITUXIMAB [Suspect]
     Indication: NON-HODGKIN'S LYMPHOMA
     Dates: start: 20060711, end: 20060711

REACTIONS (4)
  - AUTONOMIC NEUROPATHY [None]
  - MYOCARDIAL INFARCTION [None]
  - MYOCARDIAL ISCHAEMIA [None]
  - ORTHOSTATIC HYPOTENSION [None]
